FAERS Safety Report 9014260 (Version 2)
Quarter: 2013Q1

REPORT INFORMATION
  Report Type: Spontaneous
  Country: None (occurrence: CA)
  Receive Date: 20130115
  Receipt Date: 20130122
  Transmission Date: 20140127
  Serious: Yes (Life-Threatening)
  Sender: FDA-Public Use
  Company Number: 2013SP000115

PATIENT
  Age: 25 Year
  Sex: Male

DRUGS (1)
  1. LATUDA [Suspect]
     Route: 048

REACTIONS (1)
  - Overdose [Unknown]
